FAERS Safety Report 24530020 (Version 1)
Quarter: 2024Q4

REPORT INFORMATION
  Report Type: Spontaneous
  Country: CN (occurrence: CN)
  Receive Date: 20241021
  Receipt Date: 20241021
  Transmission Date: 20250115
  Serious: Yes (Life-Threatening, Other)
  Sender: SANOFI AVENTIS
  Company Number: CN-SA-2024SA299635

PATIENT
  Age: 40 Year
  Sex: Male
  Weight: 83 kg

DRUGS (2)
  1. OXALIPLATIN [Suspect]
     Active Substance: OXALIPLATIN
     Indication: Colon cancer
     Dosage: 200 MG, 1X
     Route: 041
     Dates: start: 20241013, end: 20241013
  2. DEXTROSE [Concomitant]
     Active Substance: DEXTROSE MONOHYDRATE
     Indication: Colon cancer
     Dosage: 250 ML, 1X
     Route: 041
     Dates: start: 20241013, end: 20241013

REACTIONS (3)
  - Muscular weakness [Recovered/Resolved]
  - Spinal cord oedema [Recovered/Resolved]
  - Hyperhidrosis [Recovered/Resolved]

NARRATIVE: CASE EVENT DATE: 20241013
